FAERS Safety Report 6130108-4 (Version None)
Quarter: 2009Q1

REPORT INFORMATION
  Report Type: 
  Country: None (occurrence: None)
  Receive Date: 20090324
  Receipt Date: 20090312
  Transmission Date: 20090719
  Serious: Yes (Other)
  Sender: FDA-Public Use
  Company Number: US-AMGEN-QUU338160

PATIENT
  Sex: Male

DRUGS (2)
  1. ARANESP [Suspect]
     Indication: RENAL FAILURE CHRONIC
     Route: 058
     Dates: start: 20080501
  2. CELLCEPT [Suspect]

REACTIONS (3)
  - APLASTIC ANAEMIA [None]
  - EPISTAXIS [None]
  - VITAMIN D DEFICIENCY [None]
